FAERS Safety Report 24864605 (Version 1)
Quarter: 2025Q1

REPORT INFORMATION
  Report Type: Spontaneous
  Country: AT (occurrence: AT)
  Receive Date: 20250120
  Receipt Date: 20250120
  Transmission Date: 20250409
  Serious: Yes (Other)
  Sender: ACCORD
  Company Number: None

PATIENT
  Age: 21 Year
  Sex: Female

DRUGS (7)
  1. TERIFLUNOMIDE [Suspect]
     Active Substance: TERIFLUNOMIDE
     Indication: Relapsing-remitting multiple sclerosis
     Dates: start: 2012
  2. INTERFERON [Suspect]
     Active Substance: INTERFERON
     Indication: Relapsing-remitting multiple sclerosis
  3. MITOXANTRONE [Suspect]
     Active Substance: MITOXANTRONE HYDROCHLORIDE
     Indication: Relapsing-remitting multiple sclerosis
     Dates: start: 2006, end: 2008
  4. DIMETHYL FUMARATE [Suspect]
     Active Substance: DIMETHYL FUMARATE
     Indication: Relapsing-remitting multiple sclerosis
     Dates: start: 2020
  5. OFATUMUMAB [Suspect]
     Active Substance: OFATUMUMAB
     Indication: Relapsing-remitting multiple sclerosis
     Dates: start: 202312
  6. GLATIRAMER ACETATE [Suspect]
     Active Substance: GLATIRAMER ACETATE
     Indication: Relapsing-remitting multiple sclerosis
     Dates: start: 2005
  7. DIMETHYL FUMARATE [Suspect]
     Active Substance: DIMETHYL FUMARATE
     Indication: Relapsing-remitting multiple sclerosis
     Dates: start: 2021

REACTIONS (8)
  - Relapsing-remitting multiple sclerosis [Unknown]
  - Disease progression [Unknown]
  - Leukopenia [Unknown]
  - Dizziness [Unknown]
  - Gastrointestinal disorder [Unknown]
  - Increased appetite [Unknown]
  - Paraesthesia [Unknown]
  - Nausea [Unknown]
